FAERS Safety Report 8729361 (Version 2)
Quarter: 2012Q4

REPORT INFORMATION
  Report Type: 
  Country: DE (occurrence: DE)
  Receive Date: 20120817
  Receipt Date: 20121009
  Transmission Date: 20130627
  Serious: Yes (Life-Threatening, Hospitalization)
  Sender: FDA-Public Use
  Company Number: DE-JNJFOC-20120806278

PATIENT
  Age: 46 None
  Sex: Male

DRUGS (2)
  1. REMICADE [Suspect]
     Indication: CROHN^S DISEASE
     Route: 042
     Dates: start: 2009, end: 2012
  2. AZATHIOPRIN [Suspect]
     Indication: CROHN^S DISEASE
     Route: 048
     Dates: start: 2008, end: 2012

REACTIONS (2)
  - Pancreatic carcinoma metastatic [Unknown]
  - Pneumonia streptococcal [Unknown]
